FAERS Safety Report 5389994-8 (Version None)
Quarter: 2007Q3

REPORT INFORMATION
  Report Type: 
  Country: None (occurrence: None)
  Receive Date: 20070718
  Receipt Date: 20070713
  Transmission Date: 20080115
  Serious: Yes (Hospitalization)
  Sender: FDA-Public Use
  Company Number: DE-AVENTIS-200711761DE

PATIENT
  Age: 58 Year
  Sex: Male

DRUGS (2)
  1. TELFAST                            /01314201/ [Suspect]
     Dosage: DOSE: 6X180
     Route: 048
     Dates: start: 20070702, end: 20070702
  2. PREDNISOLONE [Concomitant]
     Indication: DRUG USE FOR UNKNOWN INDICATION

REACTIONS (1)
  - ACCIDENTAL OVERDOSE [None]
